FAERS Safety Report 18625184 (Version 1)
Quarter: 2020Q4

REPORT INFORMATION
  Report Type: Spontaneous
  Country: US (occurrence: US)
  Receive Date: 20201216
  Receipt Date: 20201216
  Transmission Date: 20210114
  Serious: Yes (Other)
  Sender: FDA-Public Use
  Company Number: US-PFIZER INC-2020492843

PATIENT
  Age: 66 Year
  Sex: Male

DRUGS (1)
  1. TAFAMIDIS MEGLUMINE [Suspect]
     Active Substance: TAFAMIDIS MEGLUMINE
     Indication: AMYLOIDOSIS SENILE
     Dosage: UNK

REACTIONS (4)
  - Dyspnoea exertional [Unknown]
  - Off label use [Unknown]
  - Oedema [Unknown]
  - Renal infarct [Unknown]
